FAERS Safety Report 8078803-4 (Version None)
Quarter: 2012Q1

REPORT INFORMATION
  Report Type: 
  Country: None (occurrence: None)
  Receive Date: 20120124
  Receipt Date: 20120117
  Transmission Date: 20120608
  Serious: Yes (Hospitalization, Disabling, Other)
  Sender: FDA-Public Use
  Company Number: 2011SP030647

PATIENT
  Age: 33 Year
  Sex: Female
  Weight: 81.1939 kg

DRUGS (1)
  1. NUVARING [Suspect]
     Indication: CONTRACEPTION
     Dates: start: 20060501, end: 20090801

REACTIONS (35)
  - PULMONARY EMBOLISM [None]
  - HEAD INJURY [None]
  - PRODUCT QUALITY ISSUE [None]
  - PHARYNGITIS [None]
  - ATELECTASIS [None]
  - ORAL SURGERY [None]
  - MUSCULOSKELETAL PAIN [None]
  - TACHYCARDIA [None]
  - ARTHROPOD BITE [None]
  - CELLULITIS [None]
  - LUNG NEOPLASM [None]
  - PAIN [None]
  - SINUS POLYP [None]
  - TONSILLITIS [None]
  - JOINT INJURY [None]
  - TENDON DISORDER [None]
  - OSTEOARTHRITIS [None]
  - INTERNATIONAL NORMALISED RATIO DECREASED [None]
  - GASTROOESOPHAGEAL REFLUX DISEASE [None]
  - CAROTID ARTERY DISSECTION [None]
  - HYPERTENSION [None]
  - GINGIVAL BLEEDING [None]
  - CHEST PAIN [None]
  - DEPRESSION [None]
  - GENERALISED ANXIETY DISORDER [None]
  - VAGINAL DYSPLASIA [None]
  - ARTHRALGIA [None]
  - DYSPNOEA [None]
  - DRUG ABUSE [None]
  - DIPLOPIA [None]
  - PULMONARY FIBROSIS [None]
  - PROTEIN C DEFICIENCY [None]
  - TENDON RUPTURE [None]
  - CAROTID ARTERY OCCLUSION [None]
  - NASAL POLYPS [None]
